FAERS Safety Report 5335589-1 (Version None)
Quarter: 2007Q2

REPORT INFORMATION
  Report Type: 
  Country: None (occurrence: None)
  Receive Date: 20070526
  Receipt Date: 20070518
  Transmission Date: 20071010
  Serious: Yes (Hospitalization)
  Sender: FDA-Public Use
  Company Number: GB-PFIZER INC-2007041359

PATIENT
  Age: 48 Year
  Sex: Male
  Weight: 87 kg

DRUGS (3)
  1. ATARAX [Suspect]
     Indication: PRURITUS
     Dosage: TEXT:25 MG
     Route: 048
     Dates: start: 20070319, end: 20070321
  2. OMEPRAZOLE [Suspect]
     Indication: ODYNOPHAGIA
     Route: 048
     Dates: start: 20070319, end: 20070321
  3. MESALAZINE [Concomitant]

REACTIONS (1)
  - COLITIS [None]
